FAERS Safety Report 10139114 (Version 2)
Quarter: 2015Q1

REPORT INFORMATION
  Report Type: Other
  Country: US (occurrence: US)
  Receive Date: 20140429
  Receipt Date: 20150216
  Transmission Date: 20150720
  Serious: Yes (Hospitalization, Other)
  Sender: FDA-Public Use
  Company Number: US-GSKPPD-2014GSK042974

PATIENT
  Age: 77 Year
  Sex: Male
  Weight: 115 kg

DRUGS (8)
  1. LOPRESSOR [Concomitant]
     Active Substance: METOPROLOL TARTRATE
     Route: 048
  2. CARDURA [Concomitant]
     Active Substance: DOXAZOSIN MESYLATE
     Route: 048
  3. AVANDIA [Suspect]
     Active Substance: ROSIGLITAZONE MALEATE
     Indication: DIABETES MELLITUS
     Dosage: DATES OF AVANDIA USE COULD NOT BE CONFIRMED IN RECORDS REVIEWED.
     Route: 048
  4. AMIODARONE [Concomitant]
     Active Substance: AMIODARONE
     Route: 048
  5. LISINOPRIL. [Concomitant]
     Active Substance: LISINOPRIL
     Route: 048
  6. FUROSEMIDE. [Concomitant]
     Active Substance: FUROSEMIDE
     Route: 048
  7. ASPIRIN ENTERIC COATED [Concomitant]
     Active Substance: ASPIRIN
     Route: 048
  8. COUMADIN [Concomitant]
     Active Substance: WARFARIN SODIUM

REACTIONS (2)
  - Myocardial infarction [Recovered/Resolved]
  - Coronary arterial stent insertion [Unknown]

NARRATIVE: CASE EVENT DATE: 20070328
